FAERS Safety Report 24382643 (Version 2)
Quarter: 2024Q4

REPORT INFORMATION
  Report Type: Spontaneous
  Country: IT (occurrence: IT)
  Receive Date: 20241001
  Receipt Date: 20241019
  Transmission Date: 20250115
  Serious: Yes (Life-Threatening, Other)
  Sender: TEVA
  Company Number: IT-TEVA-VS-3247666

PATIENT
  Age: 45 Year
  Sex: Female

DRUGS (7)
  1. DEFERASIROX [Interacting]
     Active Substance: DEFERASIROX
     Indication: Thalassaemia beta
     Route: 065
  2. DEFERASIROX [Interacting]
     Active Substance: DEFERASIROX
     Indication: Thalassaemia beta
     Route: 065
  3. MESALAMINE [Interacting]
     Active Substance: MESALAMINE
     Indication: Colitis ulcerative
     Route: 065
  4. AZATHIOPRINE [Concomitant]
     Active Substance: AZATHIOPRINE
     Indication: Colitis ulcerative
     Route: 065
  5. DYDROGESTERONE [Concomitant]
     Active Substance: DYDROGESTERONE
     Indication: Product used for unknown indication
     Route: 065
  6. TOCOPHEROL [Concomitant]
     Active Substance: TOCOPHEROL
     Indication: Product used for unknown indication
     Route: 065
  7. CHOLECALCIFEROL [Concomitant]
     Active Substance: CHOLECALCIFEROL
     Indication: Product used for unknown indication
     Route: 065

REACTIONS (7)
  - Metabolic acidosis [Recovered/Resolved]
  - Toxicity to various agents [Recovered/Resolved]
  - Enterocolitis haemorrhagic [Recovered/Resolved]
  - Drug interaction [Unknown]
  - Hepatotoxicity [Unknown]
  - Nephropathy toxic [Unknown]
  - Colitis ulcerative [Recovered/Resolved]
